FAERS Safety Report 20337456 (Version 1)
Quarter: 2022Q1

REPORT INFORMATION
  Report Type: Spontaneous
  Country: US (occurrence: US)
  Receive Date: 20220114
  Receipt Date: 20220114
  Transmission Date: 20220423
  Serious: No
  Sender: FDA-Public Use
  Company Number: US-SANOFI-00922200

PATIENT
  Age: 76 Year
  Sex: Female

DRUGS (11)
  1. AMIODARONE HYDROCHLORIDE [Suspect]
     Active Substance: AMIODARONE HYDROCHLORIDE
  2. MULTAQ [Suspect]
     Active Substance: DRONEDARONE
     Indication: Arrhythmia prophylaxis
     Dosage: 400 MG, BID
     Dates: start: 20211224
  3. NASACORT [Concomitant]
     Active Substance: TRIAMCINOLONE ACETONIDE
  4. CELEBREX [Concomitant]
     Active Substance: CELECOXIB
  5. LEXAPRO [Concomitant]
     Active Substance: ESCITALOPRAM OXALATE
  6. ATENOLOL [Concomitant]
     Active Substance: ATENOLOL
  7. ALIGN [Concomitant]
     Active Substance: BIFIDOBACTERIUM LONGUM SUBSP. INFANTIS
     Dosage: 1 PILL A DAY IN MORNING
  8. MINERALS\VITAMINS [Concomitant]
     Active Substance: MINERALS\VITAMINS
  9. ST. JOHN^S WORT [Concomitant]
     Active Substance: ST. JOHN^S WORT
  10. MARIGOLD FLOWERS [Concomitant]
  11. ZEAXANTHIN [Concomitant]
     Active Substance: ZEAXANTHIN

REACTIONS (8)
  - Illness [Not Recovered/Not Resolved]
  - Erythema [Not Recovered/Not Resolved]
  - Weight increased [Not Recovered/Not Resolved]
  - Flatulence [Not Recovered/Not Resolved]
  - Flushing [Not Recovered/Not Resolved]
  - Vision blurred [Not Recovered/Not Resolved]
  - Vomiting [Not Recovered/Not Resolved]
  - Nausea [Not Recovered/Not Resolved]
